FAERS Safety Report 5022532-8 (Version None)
Quarter: 2006Q2

REPORT INFORMATION
  Report Type: 
  Country: None (occurrence: None)
  Receive Date: 20060501
  Receipt Date: 20060123
  Transmission Date: 20061013
  Serious: Yes (Other)
  Sender: FDA-Public Use
  Company Number: 006498

PATIENT
  Sex: Female

DRUGS (7)
  1. CENESTIN [Suspect]
     Dosage: ORAL
     Route: 048
     Dates: start: 20000101, end: 20040101
  2. PROMETRIUM [Suspect]
     Dosage: ORAL
     Route: 048
     Dates: start: 20000101, end: 20040101
  3. ESTRING [Suspect]
     Dosage: ORAL
     Route: 048
     Dates: start: 20000101, end: 20040101
  4. VAGIFEM [Suspect]
     Dosage: ORAL
     Route: 048
     Dates: start: 20000101, end: 20040101
  5. FEMRING [Suspect]
     Dates: start: 20000101, end: 20040101
  6. MENEST [Suspect]
     Dates: start: 20000101, end: 20040101
  7. ESTROGENS [Suspect]
     Dosage: ORAL
     Route: 048
     Dates: start: 20000101, end: 20040101

REACTIONS (1)
  - BREAST CANCER [None]
